FAERS Safety Report 10191783 (Version 1)
Quarter: 2014Q2

REPORT INFORMATION
  Report Type: Spontaneous
  Country: US (occurrence: US)
  Receive Date: 20140523
  Receipt Date: 20140523
  Transmission Date: 20141212
  Serious: No
  Sender: FDA-Public Use
  Company Number: US-BAYER-2014-076641

PATIENT
  Age: 82 Year
  Sex: Male
  Weight: 81.63 kg

DRUGS (2)
  1. ALEVE TABLET [Suspect]
     Indication: BACK PAIN
     Dosage: 1 DF, QD
     Route: 048
  2. NEXIUM [Concomitant]

REACTIONS (1)
  - Incorrect drug administration duration [None]
